FAERS Safety Report 9941148 (Version 1)
Quarter: 2014Q1

REPORT INFORMATION
  Report Type: Report from Study
  Country: US (occurrence: US)
  Receive Date: 20140303
  Receipt Date: 20140303
  Transmission Date: 20141002
  Serious: No
  Sender: FDA-Public Use
  Company Number: US-ABBVIE-13P-163-1042840-00

PATIENT
  Age: 66 Year
  Sex: Female
  Weight: 93.52 kg

DRUGS (17)
  1. HUMIRA [Suspect]
     Indication: AUTOIMMUNE DISORDER
     Dates: start: 20121226
  2. PLAVIX [Concomitant]
     Indication: THROMBOSIS PROPHYLAXIS
  3. LEVOTHYROXINE [Concomitant]
     Indication: HYPOTHYROIDISM
  4. HCTZ [Concomitant]
     Indication: FLUID RETENTION
  5. AMLODIPINE [Concomitant]
     Indication: HYPERTENSION
  6. SIMVASTATIN [Concomitant]
     Indication: BLOOD CHOLESTEROL INCREASED
  7. TRAMADOL [Concomitant]
     Indication: PAIN
  8. PREMARIN [Concomitant]
     Indication: MENOPAUSE
  9. PANTOPRAZOLE [Concomitant]
     Indication: GASTROOESOPHAGEAL REFLUX DISEASE
  10. SUCRALFATE [Concomitant]
     Indication: ULCER
  11. CELEBREX [Concomitant]
     Indication: PAIN
  12. FOLIC ACID [Concomitant]
     Indication: POLYMEDICATION
  13. METHOTREXATE [Concomitant]
     Indication: AUTOIMMUNE DISORDER
  14. LASIX [Concomitant]
     Indication: FLUID RETENTION
  15. VALTREX [Concomitant]
     Indication: ORAL HERPES
  16. ALBUTEROL [Concomitant]
     Indication: ASTHMA
  17. FLUTICASONE [Concomitant]
     Indication: ASTHMA

REACTIONS (1)
  - Off label use [Not Recovered/Not Resolved]
